FAERS Safety Report 21815562 (Version 3)
Quarter: 2023Q1

REPORT INFORMATION
  Report Type: Other
  Country: US (occurrence: None)
  Receive Date: 20230104
  Receipt Date: 20230109
  Transmission Date: 20230418
  Serious: No
  Sender: FDA-Public Use
  Company Number: US-ROCHE-3255932

PATIENT
  Age: 42 Year
  Sex: Male
  Weight: 99.880 kg

DRUGS (2)
  1. OCREVUS [Suspect]
     Active Substance: OCRELIZUMAB
     Indication: Concentric sclerosis
     Dosage: 300 MG ON DAY 1 AND DAY 15, DATE OF TREATMENT: 16/DEC/2021, 30/DEC/2021, 16/JUN/2022
     Route: 042
     Dates: start: 202110
  2. OCREVUS [Suspect]
     Active Substance: OCRELIZUMAB
     Indication: Relapsing multiple sclerosis

REACTIONS (1)
  - COVID-19 [Recovered/Resolved]

NARRATIVE: CASE EVENT DATE: 20221206
